FAERS Safety Report 8454808-6 (Version None)
Quarter: 2012Q2

REPORT INFORMATION
  Report Type: 
  Country: None (occurrence: None)
  Receive Date: 20120614
  Receipt Date: 20120531
  Transmission Date: 20120825
  Serious: Yes (Other)
  Sender: FDA-Public Use
  Company Number: FK201201549

PATIENT
  Age: 53 Year
  Sex: Male

DRUGS (3)
  1. INOTROPIC AGENTS [Concomitant]
  2. VALPROATE SODIUM [Suspect]
     Indication: STATUS EPILEPTICUS
     Dosage: INTRAVENOUS (OTHERWISE NOT SPECIFIED)
     Route: 042
  3. PHENYTOIN [Suspect]
     Indication: STATUS EPILEPTICUS

REACTIONS (6)
  - CORONARY ARTERY DISEASE [None]
  - DRUG INTERACTION [None]
  - ELECTROCARDIOGRAM ST SEGMENT ELEVATION [None]
  - ELECTROCARDIOGRAM ST SEGMENT DEPRESSION [None]
  - HAEMODYNAMIC INSTABILITY [None]
  - TOXICITY TO VARIOUS AGENTS [None]
